FAERS Safety Report 9660658 (Version 4)
Quarter: 2014Q2

REPORT INFORMATION
  Report Type: Spontaneous
  Country: US (occurrence: US)
  Receive Date: 20131031
  Receipt Date: 20140616
  Transmission Date: 20141212
  Serious: Yes (Death, Other)
  Sender: FDA-Public Use
  Company Number: US-PFIZER INC-2013242202

PATIENT
  Age: 25 Year
  Sex: Female
  Weight: 90.7 kg

DRUGS (25)
  1. XANAX [Suspect]
     Indication: ANXIETY
     Dosage: UNK
  2. XANAX [Suspect]
     Indication: ABDOMINAL PAIN UPPER
  3. ZOLOFT [Suspect]
     Indication: ANXIETY
     Dosage: UNK
  4. ZOLOFT [Suspect]
     Indication: ABDOMINAL PAIN UPPER
  5. LORAZEPAM [Suspect]
     Indication: ANXIETY
     Dosage: UNK
     Dates: start: 20110225
  6. LORAZEPAM [Suspect]
     Indication: ABDOMINAL PAIN UPPER
  7. PROMETHAZINE HCL [Suspect]
     Dosage: UNK MG, UNK
  8. FENTANYL [Suspect]
     Indication: ANXIETY
     Dosage: 25 UG, ONCE IN THREE DAYS
  9. FENTANYL [Suspect]
     Indication: ABDOMINAL PAIN UPPER
  10. DILAUDID [Suspect]
     Indication: ANXIETY
     Dosage: 4 MG, UNK
     Dates: start: 20110225
  11. DILAUDID [Suspect]
     Indication: ABDOMINAL PAIN UPPER
  12. ATIVAN [Suspect]
     Indication: ANXIETY
     Dosage: UNK
  13. ATIVAN [Suspect]
     Indication: ABDOMINAL PAIN UPPER
  14. PHENERGAN [Suspect]
     Indication: ANXIETY
     Dosage: 25 MG, UNK
     Dates: start: 20110225
  15. PHENERGAN [Suspect]
     Indication: ABDOMINAL PAIN UPPER
  16. PHENERGAN [Suspect]
     Indication: ANXIETY
     Dosage: 25 MG, UNK
     Dates: start: 20110225
  17. PHENERGAN [Suspect]
     Indication: ABDOMINAL PAIN UPPER
  18. KLONOPIN [Suspect]
     Indication: ANXIETY
     Dosage: 2 MG, UNK
     Dates: start: 20110225
  19. KLONOPIN [Suspect]
     Indication: ABDOMINAL PAIN UPPER
  20. TORADOL [Suspect]
     Indication: ANXIETY
     Dosage: UNK
     Dates: start: 20110225
  21. TORADOL [Suspect]
     Indication: ABDOMINAL PAIN UPPER
  22. CYMBALTA [Suspect]
     Indication: ANXIETY
     Dosage: 60 MG, UNK
     Dates: start: 20110225
  23. CYMBALTA [Suspect]
     Indication: ABDOMINAL PAIN UPPER
  24. CLONAZEPAM [Suspect]
     Dosage: UNK
  25. ABILIFY [Suspect]
     Dosage: UNK

REACTIONS (4)
  - Toxicity to various agents [Fatal]
  - Overdose [Fatal]
  - Substance abuse [Unknown]
  - Feeling abnormal [Unknown]
